FAERS Safety Report 10017681 (Version 1)
Quarter: 2014Q1

REPORT INFORMATION
  Report Type: Spontaneous
  Country: US (occurrence: US)
  Receive Date: 20140318
  Receipt Date: 20140318
  Transmission Date: 20141002
  Serious: Yes (Other)
  Sender: FDA-Public Use
  Company Number: 2014SP000797

PATIENT
  Sex: 0

DRUGS (2)
  1. LATUDA [Suspect]
     Route: 048
  2. LATUDA [Suspect]
     Route: 048

REACTIONS (3)
  - Hypotension [Unknown]
  - Arrhythmia [Unknown]
  - Overdose [None]
